FAERS Safety Report 17833079 (Version 1)
Quarter: 2020Q2

REPORT INFORMATION
  Report Type: Spontaneous
  Country: US (occurrence: US)
  Receive Date: 20200528
  Receipt Date: 20200528
  Transmission Date: 20200714
  Serious: No
  Sender: FDA-Public Use
  Company Number: US-UCBSA-2019052858

PATIENT
  Sex: Male

DRUGS (1)
  1. CIMZIA [Suspect]
     Active Substance: CERTOLIZUMAB PEGOL
     Indication: CROHN^S DISEASE
     Dosage: 400 MILLIGRAM, EV 4 WEEKS
     Route: 058
     Dates: start: 20180926

REACTIONS (8)
  - Influenza [Recovered/Resolved]
  - Nasal congestion [Not Recovered/Not Resolved]
  - Gastrointestinal pain [Unknown]
  - Injection site reaction [Recovered/Resolved]
  - Injection site pain [Unknown]
  - Pyrexia [Unknown]
  - Gastroenteritis viral [Unknown]
  - Oral herpes [Recovering/Resolving]
